FAERS Safety Report 8249608-6 (Version None)
Quarter: 2012Q2

REPORT INFORMATION
  Report Type: 
  Country: None (occurrence: None)
  Receive Date: 20120402
  Receipt Date: 20120322
  Transmission Date: 20120825
  Serious: Yes (Hospitalization)
  Sender: FDA-Public Use
  Company Number: US-COVIDIEN/TYCO HEALTHCARE/MALLINCKRODT-T201201299

PATIENT

DRUGS (1)
  1. METHYLIN [Suspect]
     Dosage: MEAN DOSE 20 MG/DAY

REACTIONS (1)
  - MYOCARDIAL INFARCTION [None]
